FAERS Safety Report 7177281-7 (Version None)
Quarter: 2010Q4

REPORT INFORMATION
  Report Type: 
  Country: None (occurrence: None)
  Receive Date: 20101220
  Receipt Date: 20101206
  Transmission Date: 20110411
  Serious: Yes (Hospitalization, Other)
  Sender: FDA-Public Use
  Company Number: US-ELI_LILLY_AND_COMPANY-US201012001632

PATIENT
  Sex: Female

DRUGS (29)
  1. FORTEO [Suspect]
     Indication: OSTEOPOROSIS
     Dosage: 20 UG, DAILY (1/D)
     Dates: start: 20101108
  2. GABAPENTIN [Concomitant]
  3. FOLIC ACID [Concomitant]
  4. METHOTREXATE [Concomitant]
  5. ADDERALL 10 [Concomitant]
  6. PROPRANOLOL [Concomitant]
  7. ZOLPIDEM [Concomitant]
  8. LAMOTRIGINE [Concomitant]
  9. LEXAPRO [Concomitant]
  10. DIAZEPAM [Concomitant]
  11. OXYCONTIN [Concomitant]
     Dosage: 20 MG, 3/D
  12. OXYCONTIN [Concomitant]
     Dosage: 40 MG, 3/D
  13. OXYCONTIN [Concomitant]
     Dosage: UNK, 2/D
  14. PREDNISONE [Concomitant]
  15. RELAFEN [Concomitant]
  16. REMICADE [Concomitant]
     Dosage: UNK, EVERY 8 WEEKS
  17. PILOCARPINE [Concomitant]
  18. ASPIRIN [Concomitant]
     Dosage: 81 MG, UNK
  19. SPIRIVA [Concomitant]
  20. BENICAR [Concomitant]
  21. FUROSEMIDE [Concomitant]
  22. POTASSIUM [Concomitant]
  23. SIMVASTATIN [Concomitant]
  24. ACYCLOVIR SODIUM [Concomitant]
  25. NITROFURANTOIN [Concomitant]
  26. LOTEMAX [Concomitant]
  27. RESTASIS [Concomitant]
  28. METAMUCIL-2 [Concomitant]
  29. POLYETHYLENE GLYCOL [Concomitant]

REACTIONS (3)
  - EXPIRED DRUG ADMINISTERED [None]
  - PAIN [None]
  - PELVIC FRACTURE [None]
